FAERS Safety Report 8223433-4 (Version None)
Quarter: 2012Q1

REPORT INFORMATION
  Report Type: 
  Country: None (occurrence: None)
  Receive Date: 20120321
  Receipt Date: 20120309
  Transmission Date: 20120608
  Serious: Yes (Hospitalization, Other)
  Sender: FDA-Public Use
  Company Number: AU-ELI_LILLY_AND_COMPANY-AU201201003650

PATIENT
  Sex: Female

DRUGS (1)
  1. FORTEO [Suspect]
     Indication: OSTEOPOROSIS
     Dosage: 20 UG, QD
     Dates: start: 20110913

REACTIONS (5)
  - MYOCARDIAL STRAIN [None]
  - HYPERTHYROIDISM [None]
  - DELIRIUM [None]
  - SPEECH DISORDER [None]
  - GENERAL PHYSICAL CONDITION ABNORMAL [None]
